FAERS Safety Report 4429836-8 (Version None)
Quarter: 2004Q3

REPORT INFORMATION
  Report Type: 
  Country: None (occurrence: None)
  Receive Date: 20040817
  Receipt Date: 20040805
  Transmission Date: 20050211
  Serious: Yes (Other)
  Sender: FDA-Public Use
  Company Number: 2004054394

PATIENT

DRUGS (5)
  1. NEURONTIN [Suspect]
     Indication: ILL-DEFINED DISORDER
  2. DICLOFENAC SODIUM [Suspect]
     Indication: ILL-DEFINED DISORDER
  3. PROPACET 100 [Suspect]
     Indication: ILL-DEFINED DISORDER
  4. CYCLOBENZAPRINE HYDROCHLORIDE [Suspect]
     Indication: ILL-DEFINED DISORDER
  5. ALL OTHER THERAPEUTIC PRODUCTS (ALL OTHER THERAPEUTIC PRODUCTS) [Suspect]
     Indication: ILL-DEFINED DISORDER

REACTIONS (1)
  - NO ADVERSE DRUG EFFECT [None]
